FAERS Safety Report 8885731 (Version 2)
Quarter: 2013Q2

REPORT INFORMATION
  Report Type: Spontaneous
  Country: US (occurrence: US)
  Receive Date: 20121102
  Receipt Date: 20130503
  Transmission Date: 20140414
  Serious: Yes (Other)
  Sender: FDA-Public Use
  Company Number: US-009507513-1210USA013741

PATIENT
  Sex: Male

DRUGS (4)
  1. SAPHRIS [Suspect]
     Dosage: 10 MG, UNK
     Route: 060
     Dates: start: 20121026
  2. OPANA [Concomitant]
  3. SEROQUEL [Concomitant]
     Indication: SLEEP DISORDER
  4. ADDERALL TABLETS [Concomitant]

REACTIONS (3)
  - Tongue paralysis [Not Recovered/Not Resolved]
  - Speech disorder [Not Recovered/Not Resolved]
  - Muscle disorder [Not Recovered/Not Resolved]
